FAERS Safety Report 26169814 (Version 1)
Quarter: 2025Q4

REPORT INFORMATION
  Report Type: Spontaneous
  Country: GB (occurrence: GB)
  Receive Date: 20251217
  Receipt Date: 20251217
  Transmission Date: 20260118
  Serious: Yes (Life-Threatening, Hospitalization)
  Sender: ELI LILLY AND COMPANY
  Company Number: GB-ELI_LILLY_AND_COMPANY-GB202512016738

PATIENT
  Age: 39 Year
  Sex: Male

DRUGS (2)
  1. TIRZEPATIDE [Suspect]
     Active Substance: TIRZEPATIDE
     Indication: Weight decreased
     Dosage: 2.5 MG, WEEKLY (1/W)
     Route: 065
  2. TIRZEPATIDE [Suspect]
     Active Substance: TIRZEPATIDE
     Dosage: 12.5 MG, WEEKLY (1/W)
     Route: 065

REACTIONS (21)
  - Respiratory failure [Unknown]
  - Pneumonia aspiration [Unknown]
  - Multiple organ dysfunction syndrome [Unknown]
  - Septic shock [Unknown]
  - Metabolic acidosis [Unknown]
  - Hypoglycaemia [Recovered/Resolved]
  - Starvation ketoacidosis [Unknown]
  - Anaemia folate deficiency [Unknown]
  - Anaemia [Unknown]
  - Sepsis [Recovered/Resolved]
  - Coagulopathy [Unknown]
  - Peripheral sensorimotor neuropathy [Unknown]
  - Polyneuropathy [Unknown]
  - Circulatory collapse [Unknown]
  - Decreased appetite [Unknown]
  - Bone marrow failure [Unknown]
  - Folate deficiency [Unknown]
  - Dysarthria [Unknown]
  - Asthenia [Unknown]
  - Malnutrition [Unknown]
  - Inappropriate schedule of product administration [Unknown]
